FAERS Safety Report 6122918-4 (Version None)
Quarter: 2009Q1

REPORT INFORMATION
  Report Type: 
  Country: None (occurrence: None)
  Receive Date: 20090318
  Receipt Date: 20080612
  Transmission Date: 20090719
  Serious: No
  Sender: FDA-Public Use
  Company Number: US-AMGEN-KDL277091

PATIENT
  Sex: Female
  Weight: 64.5 kg

DRUGS (3)
  1. NEULASTA [Suspect]
     Indication: CHEMOTHERAPY
     Route: 058
     Dates: start: 20080425
  2. ADRIAMYCIN RDF [Concomitant]
     Dates: start: 20080424
  3. CYTOXAN [Concomitant]
     Dates: start: 20080522

REACTIONS (6)
  - MUSCULOSKELETAL CHEST PAIN [None]
  - MUSCULOSKELETAL PAIN [None]
  - NECK PAIN [None]
  - NEUROPATHY PERIPHERAL [None]
  - PAIN IN JAW [None]
  - PAIN OF SKIN [None]
